FAERS Safety Report 6842707-2 (Version None)
Quarter: 2010Q3

REPORT INFORMATION
  Report Type: 
  Country: None (occurrence: None)
  Receive Date: 20100714
  Receipt Date: 20070801
  Transmission Date: 20110219
  Serious: No
  Sender: FDA-Public Use
  Company Number: US-PFIZER INC-2007065276

PATIENT
  Sex: Female

DRUGS (4)
  1. CHANTIX [Suspect]
     Dates: start: 20070724
  2. XANAX [Concomitant]
  3. ESTRATEST [Concomitant]
  4. ALL OTHER THERAPEUTIC PRODUCTS [Concomitant]

REACTIONS (1)
  - INSOMNIA [None]
